FAERS Safety Report 5033023-2 (Version None)
Quarter: 2006Q2

REPORT INFORMATION
  Report Type: 
  Country: None (occurrence: None)
  Receive Date: 20060511
  Receipt Date: 20060214
  Transmission Date: 20061013
  Serious: Yes (Other)
  Sender: FDA-Public Use
  Company Number: 200611565US

PATIENT
  Age: 25 Year
  Sex: Female
  Weight: 77.27 kg

DRUGS (3)
  1. INSULIN GLULISINE (APIDRA) [Suspect]
     Indication: DIABETES MELLITUS INSULIN-DEPENDENT
     Dates: start: 20060101, end: 20060203
  2. NOVOLOG [Concomitant]
  3. HUMALOG [Concomitant]

REACTIONS (6)
  - BLOOD GLUCOSE DECREASED [None]
  - BLOOD GLUCOSE FLUCTUATION [None]
  - BLOOD GLUCOSE INCREASED [None]
  - BRONCHITIS [None]
  - HYPOGLYCAEMIC SEIZURE [None]
  - URINARY TRACT INFECTION [None]
